FAERS Safety Report 15233203 (Version 2)
Quarter: 2018Q3

REPORT INFORMATION
  Report Type: Spontaneous
  Country: JP (occurrence: JP)
  Receive Date: 20180802
  Receipt Date: 20180808
  Transmission Date: 20181010
  Serious: Yes (Other)
  Sender: FDA-Public Use
  Company Number: JP-MYLANLABS-2018M1058462

PATIENT

DRUGS (6)
  1. BETAMETHASONE SODIUM PHOSPHATE [Concomitant]
     Active Substance: BETAMETHASONE SODIUM PHOSPHATE
     Indication: PRETERM PREMATURE RUPTURE OF MEMBRANES
     Dosage: UNK
     Route: 064
  2. RITODRINE HYDROCHLORIDE [Concomitant]
     Active Substance: RITODRINE HYDROCHLORIDE
     Indication: PRETERM PREMATURE RUPTURE OF MEMBRANES
     Route: 064
  3. RITODRINE HYDROCHLORIDE [Concomitant]
     Active Substance: RITODRINE HYDROCHLORIDE
     Indication: PRODUCT USED FOR UNKNOWN INDICATION
     Route: 064
  4. RITODRINE HYDROCHLORIDE [Concomitant]
     Active Substance: RITODRINE HYDROCHLORIDE
     Indication: PRETERM PREMATURE RUPTURE OF MEMBRANES
  5. AMPICILLIN [Concomitant]
     Active Substance: AMPICILLIN
     Indication: PRETERM PREMATURE RUPTURE OF MEMBRANES
     Dosage: UNK
     Route: 064
  6. ERYTHROCIN [Suspect]
     Active Substance: ERYTHROMYCIN LACTOBIONATE
     Indication: PRETERM PREMATURE RUPTURE OF MEMBRANES
     Dosage: UNK
     Route: 064

REACTIONS (4)
  - Tachycardia foetal [Unknown]
  - Baseline foetal heart rate variability disorder [Recovered/Resolved]
  - Foetal exposure during pregnancy [Unknown]
  - Foetal heart rate deceleration abnormality [Unknown]
